FAERS Safety Report 15914118 (Version 1)
Quarter: 2019Q1

REPORT INFORMATION
  Report Type: Spontaneous
  Country: US (occurrence: US)
  Receive Date: 20190204
  Receipt Date: 20190204
  Transmission Date: 20190417
  Serious: Yes (Other)
  Sender: FDA-Public Use
  Company Number: None

PATIENT
  Age: 23 Year
  Sex: Female
  Weight: 74.25 kg

DRUGS (2)
  1. ADVIL [Suspect]
     Active Substance: IBUPROFEN
     Indication: PAIN
     Dates: start: 20190109, end: 20190204
  2. ZESTRIL [Suspect]
     Active Substance: LISINOPRIL
     Dates: start: 20190108, end: 20190204

REACTIONS (1)
  - Fall [None]

NARRATIVE: CASE EVENT DATE: 20110413
